FAERS Safety Report 7283824-5 (Version None)
Quarter: 2011Q1

REPORT INFORMATION
  Report Type: 
  Country: None (occurrence: None)
  Receive Date: 20110209
  Receipt Date: 20110207
  Transmission Date: 20110831
  Serious: Yes (Life-Threatening, Other)
  Sender: FDA-Public Use
  Company Number: CA-PFIZER INC-2010018532

PATIENT
  Age: 42 Year
  Sex: Female
  Weight: 97.052 kg

DRUGS (2)
  1. CHAMPIX [Suspect]
     Dosage: 1 TAB TWICE DAILY
     Dates: start: 20071104, end: 20071112
  2. CHAMPIX [Suspect]
     Indication: SMOKING CESSATION THERAPY
     Dosage: 1 TAB DAILY FOR 3 DAYS
     Dates: start: 20071101, end: 20071103

REACTIONS (6)
  - DEPRESSION [None]
  - ANGER [None]
  - CRYING [None]
  - SUICIDAL IDEATION [None]
  - AGGRESSION [None]
  - EMOTIONAL DISORDER [None]
